FAERS Safety Report 7355848-0 (Version None)
Quarter: 2011Q1

REPORT INFORMATION
  Report Type: 
  Country: None (occurrence: None)
  Receive Date: 20110316
  Receipt Date: 20110310
  Transmission Date: 20110831
  Serious: Yes (Other)
  Sender: FDA-Public Use
  Company Number: DE-AMGEN-DEUSP2011005077

PATIENT
  Age: 79 Year
  Sex: Female
  Weight: 61 kg

DRUGS (11)
  1. THEOPHYLLINE [Concomitant]
  2. CORDINATE [Concomitant]
  3. ASPIRIN [Concomitant]
     Dosage: UNK UNK, PRN
  4. BERODUAL INHALATION SOLUTION [Concomitant]
     Route: 055
  5. NITROGLYCERIN [Concomitant]
  6. CORDANUM [Concomitant]
  7. SALBUTAMOL [Concomitant]
  8. LEVOTHYROXINE SODIUM [Concomitant]
  9. REWODINA [Concomitant]
     Dosage: UNK UNK, PRN
  10. PROLIA [Suspect]
     Indication: PRODUCT USED FOR UNKNOWN INDICATION
     Dosage: 1 ML, Q6MO
     Route: 058
     Dates: start: 20101202
  11. DIGITOXIN [Concomitant]

REACTIONS (5)
  - UNEVALUABLE EVENT [None]
  - FALL [None]
  - DIZZINESS [None]
  - HYPOAESTHESIA [None]
  - HYPERHIDROSIS [None]
